FAERS Safety Report 24230431 (Version 2)
Quarter: 2025Q2

REPORT INFORMATION
  Report Type: Spontaneous
  Country: CN (occurrence: CN)
  Receive Date: 20240821
  Receipt Date: 20250609
  Transmission Date: 20250716
  Serious: Yes (Hospitalization)
  Sender: RANBAXY
  Company Number: CN-SUN PHARMACEUTICAL INDUSTRIES LTD-2024R1-462278

PATIENT
  Age: 19 Year
  Sex: Male
  Weight: 50 kg

DRUGS (7)
  1. PALIPERIDONE [Suspect]
     Active Substance: PALIPERIDONE
     Indication: Paranoia
     Dosage: 3 MILLIGRAM, QD
     Route: 048
     Dates: start: 20240716, end: 20240718
  2. PALIPERIDONE [Suspect]
     Active Substance: PALIPERIDONE
     Indication: Paranoia
     Dosage: 6 MILLIGRAM, QD
     Route: 048
     Dates: start: 20240718, end: 20240806
  3. CLONAZEPAM [Concomitant]
     Active Substance: CLONAZEPAM
     Indication: Sleep disorder
     Dosage: 1 MILLIGRAM, QD
     Route: 048
     Dates: start: 20240716, end: 20240719
  4. ESCITALOPRAM OXALATE [Concomitant]
     Active Substance: ESCITALOPRAM OXALATE
     Indication: Paranoia
     Dosage: 10 MILLIGRAM, QD
     Route: 048
     Dates: start: 20240719, end: 20240806
  5. ESCITALOPRAM OXALATE [Concomitant]
     Active Substance: ESCITALOPRAM OXALATE
     Dosage: 5 MILLIGRAM, QD
     Route: 048
     Dates: start: 20240716, end: 20240719
  6. ESZOPICLONE [Concomitant]
     Active Substance: ESZOPICLONE
     Indication: Sleep disorder
     Dosage: 3 MILLIGRAM, QD
     Route: 048
     Dates: start: 20240719, end: 20240730
  7. VITAMIN B6 [Concomitant]
     Active Substance: PYRIDOXINE HYDROCHLORIDE
     Indication: Adjuvant therapy
     Dosage: 10 MILLIGRAM, TID
     Route: 048
     Dates: start: 20240716, end: 20240806

REACTIONS (1)
  - Extrapyramidal disorder [Unknown]

NARRATIVE: CASE EVENT DATE: 20240722
